FAERS Safety Report 16918244 (Version 1)
Quarter: 2019Q4

REPORT INFORMATION
  Report Type: Spontaneous
  Country: DE (occurrence: DE)
  Receive Date: 20191015
  Receipt Date: 20191015
  Transmission Date: 20200122
  Serious: Yes (Hospitalization)
  Sender: FDA-Public Use
  Company Number: DE-JNJFOC-20191010746

PATIENT
  Age: 51 Year
  Sex: Male
  Weight: 84 kg

DRUGS (1)
  1. TREMFYA [Suspect]
     Active Substance: GUSELKUMAB
     Indication: PSORIASIS
     Dosage: DAILY DOSE: 3 DF DOSAGE FORM EVERY TOTAL; IN TOTAL
     Route: 058
     Dates: start: 20190330, end: 20190723

REACTIONS (3)
  - Hypothyroidism [Not Recovered/Not Resolved]
  - Myxoedema [Not Recovered/Not Resolved]
  - Autoimmune thyroiditis [Not Recovered/Not Resolved]

NARRATIVE: CASE EVENT DATE: 20190801
